FAERS Safety Report 23032320 (Version 4)
Quarter: 2025Q3

REPORT INFORMATION
  Report Type: Report from Study
  Country: CA (occurrence: CA)
  Receive Date: 20231005
  Receipt Date: 20250714
  Transmission Date: 20251021
  Serious: Yes (Other)
  Sender: SANDOZ
  Company Number: CA-002147023-NVSC2022CA192080

PATIENT
  Age: 70 Year
  Sex: Female

DRUGS (2)
  1. HYRIMOZ [Suspect]
     Active Substance: ADALIMUMAB-ADAZ
     Indication: Behcet^s syndrome
     Dosage: 40 MG, Q2W
     Route: 058
     Dates: start: 20220329
  2. HYRIMOZ [Suspect]
     Active Substance: ADALIMUMAB-ADAZ
     Indication: Rheumatoid arthritis

REACTIONS (9)
  - Pneumonia bacterial [Not Recovered/Not Resolved]
  - COVID-19 [Not Recovered/Not Resolved]
  - Hip fracture [Unknown]
  - Shoulder operation [Unknown]
  - Fatigue [Not Recovered/Not Resolved]
  - Asthenia [Not Recovered/Not Resolved]
  - Off label use [Not Recovered/Not Resolved]
  - Bone pain [Unknown]
  - Spondylitis [Unknown]

NARRATIVE: CASE EVENT DATE: 20240301
